FAERS Safety Report 9947456 (Version 1)
Quarter: 2014Q1

REPORT INFORMATION
  Report Type: Report from Study
  Country: US (occurrence: US)
  Receive Date: 20140303
  Receipt Date: 20140303
  Transmission Date: 20141002
  Serious: No
  Sender: FDA-Public Use
  Company Number: US-ABBVIE-13P-163-1060582-00

PATIENT
  Age: 49 Year
  Sex: Male
  Weight: 92.16 kg

DRUGS (4)
  1. HUMIRA [Suspect]
     Indication: PSORIATIC ARTHROPATHY
     Dates: start: 201301
  2. HUMIRA [Suspect]
     Indication: PSORIASIS
  3. LISINOPRIL [Concomitant]
     Indication: PRODUCT USED FOR UNKNOWN INDICATION
  4. NAPROSYN [Concomitant]
     Indication: LOCAL SWELLING

REACTIONS (2)
  - Incorrect dose administered [Unknown]
  - Psoriasis [Not Recovered/Not Resolved]
